FAERS Safety Report 6904047-2 (Version None)
Quarter: 2010Q3

REPORT INFORMATION
  Report Type: 
  Country: None (occurrence: None)
  Receive Date: 20100804
  Receipt Date: 20090313
  Transmission Date: 20110219
  Serious: No
  Sender: FDA-Public Use
  Company Number: US-PFIZER INC-2009177364

PATIENT
  Sex: Female
  Weight: 51.2 kg

DRUGS (3)
  1. LYRICA [Suspect]
     Indication: FIBROMYALGIA
     Dosage: 150 MG, 2X/DAY
  2. XANAX [Concomitant]
  3. DURAGESIC-100 [Concomitant]

REACTIONS (2)
  - DRUG INEFFECTIVE [None]
  - FEELING ABNORMAL [None]
